FAERS Safety Report 8384600-2 (Version None)
Quarter: 2012Q2

REPORT INFORMATION
  Report Type: 
  Country: None (occurrence: None)
  Receive Date: 20120524
  Receipt Date: 20120518
  Transmission Date: 20120825
  Serious: Yes (Hospitalization)
  Sender: FDA-Public Use
  Company Number: EC-B.I. PHARMACEUTICALS,INC./RIDGEFIELD-2012-RA-00128RA

PATIENT
  Age: 86 Year
  Sex: Female

DRUGS (5)
  1. OMEPRAZOLE [Concomitant]
     Indication: GASTRIC DISORDER
     Dosage: 40 MG
     Route: 048
     Dates: start: 20120514
  2. PRADAXA [Suspect]
     Indication: THROMBOSIS PROPHYLAXIS
     Dosage: 150 MG
     Route: 048
     Dates: start: 20120514
  3. ACETAMINOPHEN [Concomitant]
     Indication: ANALGESIC THERAPY
     Dosage: 3 G
     Route: 048
     Dates: start: 20120514
  4. LEVOTIROXINA [Concomitant]
     Indication: HYPOTHYROIDISM
     Route: 048
  5. CEPHALEXIN [Concomitant]
     Dosage: 2 G
     Route: 048
     Dates: start: 20120514

REACTIONS (2)
  - PYREXIA [None]
  - DEHYDRATION [None]
